FAERS Safety Report 4446210-9 (Version None)
Quarter: 2004Q3

REPORT INFORMATION
  Report Type: 
  Country: None (occurrence: None)
  Receive Date: 20040907
  Receipt Date: 20040827
  Transmission Date: 20050211
  Serious: Yes (Hospitalization)
  Sender: FDA-Public Use
  Company Number: 208731

PATIENT
  Age: 68 Year
  Sex: Male
  Weight: 78.5 kg

DRUGS (6)
  1. AVASTIN [Suspect]
     Indication: COLON CANCER METASTATIC
     Dosage: 450 MG, Q2W, INTRAVENOUS
     Route: 042
     Dates: start: 20040427, end: 20040622
  2. OXALIPLATIN (OXALIPLATIN) [Suspect]
     Indication: COLON CANCER METASTATIC
     Dosage: 200 MG, INTRAVENOUS
     Route: 042
     Dates: start: 20040622
  3. FLUOROURACIL [Suspect]
     Indication: COLON CANCER METASTATIC
     Dosage: SEE IMAGE
     Route: 040
     Dates: start: 20040622
  4. FLUOROURACIL [Suspect]
     Indication: COLON CANCER METASTATIC
     Dosage: SEE IMAGE
     Route: 040
     Dates: start: 20040622
  5. CPT-11 (IRINOTECAN HYDROCHLORIDE) [Suspect]
     Indication: COLON CANCER METASTATIC
     Dosage: 340 MG, INTRAVENOUS
     Route: 042
     Dates: start: 20040719
  6. LEUCOVORIN CALCIUM [Concomitant]

REACTIONS (3)
  - MUCOSAL INFLAMMATION [None]
  - NEUTROPENIA [None]
  - WHITE BLOOD CELL COUNT DECREASED [None]
